FAERS Safety Report 9031722 (Version 2)
Quarter: 2013Q1

REPORT INFORMATION
  Report Type: Spontaneous
  Country: US (occurrence: US)
  Receive Date: 20130124
  Receipt Date: 20130311
  Transmission Date: 20140127
  Serious: Yes (Hospitalization)
  Sender: FDA-Public Use
  Company Number: US-FRI-1000041891

PATIENT
  Age: 37 None
  Sex: Male
  Weight: 93.8 kg

DRUGS (2)
  1. VIIBRYD [Suspect]
     Dates: end: 201212
  2. SEROQUEL [Concomitant]
     Indication: DEPRESSION
     Dosage: 400 MG
     Route: 048

REACTIONS (2)
  - Glomerulonephritis [Recovered/Resolved]
  - Gastrointestinal disorder [Recovered/Resolved]
